FAERS Safety Report 16984952 (Version 4)
Quarter: 2019Q4

REPORT INFORMATION
  Report Type: Spontaneous
  Country: US (occurrence: US)
  Receive Date: 20191101
  Receipt Date: 20191220
  Transmission Date: 20200122
  Serious: Yes (Hospitalization, Other)
  Sender: FDA-Public Use
  Company Number: US-CATALYST PHARMACEUTICALS, INC-2019CAT00536

PATIENT
  Age: 88 Year
  Sex: Female
  Weight: 92.52 kg

DRUGS (25)
  1. FIRDAPSE [Suspect]
     Active Substance: AMIFAMPRIDINE
     Dosage: 5 MG, 1X/DAY
     Route: 048
     Dates: start: 2019
  2. BACTRIM [Suspect]
     Active Substance: SULFAMETHOXAZOLE\TRIMETHOPRIM
     Dosage: UNK
     Dates: start: 2019
  3. CITRA CAL PLUS D 3 [Concomitant]
  4. COENZYME Q10 [Concomitant]
     Active Substance: UBIDECARENONE
  5. LATANOPROST. [Concomitant]
     Active Substance: LATANOPROST
  6. DIGOXIN. [Concomitant]
     Active Substance: DIGOXIN
  7. PREDNISONE. [Concomitant]
     Active Substance: PREDNISONE
  8. MAG OXIDE [Concomitant]
     Active Substance: MAGNESIUM OXIDE
  9. AMIODARONE [Concomitant]
     Active Substance: AMIODARONE
  10. FUROSEMIDE. [Concomitant]
     Active Substance: FUROSEMIDE
  11. METOPROLOL. [Concomitant]
     Active Substance: METOPROLOL
  12. MIDODRINE [Concomitant]
     Active Substance: MIDODRINE
  13. TYLENOL [Concomitant]
     Active Substance: ACETAMINOPHEN
  14. COLACE [Concomitant]
     Active Substance: DOCUSATE SODIUM
  15. FISH OIL [Concomitant]
     Active Substance: FISH OIL
  16. MULTIVITAMIN [Concomitant]
     Active Substance: VITAMINS
  17. NIACIN. [Concomitant]
     Active Substance: NIACIN
  18. XARELTO [Concomitant]
     Active Substance: RIVAROXABAN
  19. FIRDAPSE [Suspect]
     Active Substance: AMIFAMPRIDINE
     Indication: MYASTHENIC SYNDROME
     Dosage: 20 MG, 3X/DAY
     Route: 048
     Dates: start: 201905, end: 2019
  20. OMEPRAZOLE. [Concomitant]
     Active Substance: OMEPRAZOLE
  21. VITAMIN B12 [Concomitant]
     Active Substance: CYANOCOBALAMIN
  22. OMEGA 3 [Concomitant]
     Active Substance: OMEGA-3 FATTY ACIDS
  23. PRESERVISON AREDS 2 [Concomitant]
  24. PROLIA [Concomitant]
     Active Substance: DENOSUMAB
  25. RANITIDINE. [Concomitant]
     Active Substance: RANITIDINE

REACTIONS (8)
  - Septic shock [Recovering/Resolving]
  - Nephrolithiasis [Recovering/Resolving]
  - Klebsiella infection [Unknown]
  - Urinary tract infection [Recovering/Resolving]
  - Fall [Recovering/Resolving]
  - Proteus infection [Unknown]
  - Renal impairment [Recovering/Resolving]
  - Tremor [Recovering/Resolving]

NARRATIVE: CASE EVENT DATE: 2019
